FAERS Safety Report 10266054 (Version 1)
Quarter: 2014Q2

REPORT INFORMATION
  Report Type: Spontaneous
  Country: US (occurrence: US)
  Receive Date: 20140627
  Receipt Date: 20140627
  Transmission Date: 20141212
  Serious: No
  Sender: FDA-Public Use
  Company Number: US-ASTRAZENECA-2014SE45153

PATIENT
  Sex: Male

DRUGS (2)
  1. SEROQUEL [Suspect]
     Indication: OBSESSIVE-COMPULSIVE DISORDER
     Dosage: UNK UNK
     Route: 048
     Dates: start: 2010
  2. SEROQUEL [Suspect]
     Indication: PARANOIA
     Dosage: UNK UNK
     Route: 048
     Dates: start: 2010

REACTIONS (10)
  - Weight decreased [Unknown]
  - Decreased appetite [Unknown]
  - Obsessive-compulsive disorder [Unknown]
  - Eating disorder [Unknown]
  - Renal disorder [Unknown]
  - Diabetes mellitus [Unknown]
  - Hepatic steatosis [Unknown]
  - Adverse event [Unknown]
  - Weight increased [Unknown]
  - Intentional product misuse [Unknown]
